FAERS Safety Report 19837090 (Version 2)
Quarter: 2021Q3

REPORT INFORMATION
  Report Type: Spontaneous
  Country: US (occurrence: US)
  Receive Date: 20210914
  Receipt Date: 20210930
  Transmission Date: 20211014
  Serious: No
  Sender: FDA-Public Use
  Company Number: US-009507513-2109USA001920

PATIENT
  Age: 66 Year
  Sex: Female

DRUGS (18)
  1. JANUVIA [Suspect]
     Active Substance: SITAGLIPTIN PHOSPHATE
     Indication: TYPE 2 DIABETES MELLITUS
     Dosage: 50 MG? ONCE DAILY
     Route: 048
     Dates: start: 202104, end: 20210903
  2. LANTUS [Concomitant]
     Active Substance: INSULIN GLARGINE
     Dosage: 20 UNITS SUBCUTANEOUSLY ONCE DAILY
     Route: 058
  3. GLUCOPHAGE XR [Concomitant]
     Active Substance: METFORMIN HYDROCHLORIDE
     Dosage: 1 TABLET (500 MG TOTAL) BY MOUTH 2 (TWO) TIMES A DAY
     Route: 048
  4. MUCINEX DM [Concomitant]
     Active Substance: DEXTROMETHORPHAN HYDROBROMIDE\GUAIFENESIN
     Dosage: 1 TABLET BY MOUTH EVERY 12 (TWELVE) HOURS
     Route: 048
  5. VIBRA?TABS [DOXYCYCLINE MONOHYDRATE] [Concomitant]
     Dosage: 100 MG BY MOUTH 2 (TWO) TIMES A DAY
     Route: 048
  6. FLONASE [Concomitant]
     Active Substance: FLUTICASONE PROPIONATE
     Dosage: 2 SPRAYS BY NASAL ROUTE DAILY
     Route: 045
  7. K?DUR [Concomitant]
     Active Substance: POTASSIUM CHLORIDE
     Dosage: 1 TABLET (20 MEQ TOTAL) BY MOUTH DAILY
     Route: 048
  8. VITAMIN D3 [Concomitant]
     Active Substance: CHOLECALCIFEROL
     Dosage: 1000 UNITS BY MOUTH DAILY
     Route: 048
  9. LIDOCAINE. [Concomitant]
     Active Substance: LIDOCAINE
     Dosage: 10 ML BY MOUTH EVERY 3 (THREE) HOUR
     Route: 048
  10. MICARDIS [Concomitant]
     Active Substance: TELMISARTAN
     Dosage: 1 TABLET (80 MG TOTAL) BY MOUTH DAILY
     Route: 048
  11. NORVASC [Concomitant]
     Active Substance: AMLODIPINE BESYLATE
     Dosage: 1 TABLET (5 MG TOTAL) BY MOUTH DAILY
     Route: 048
  12. WELCHOL [Concomitant]
     Active Substance: COLESEVELAM HYDROCHLORIDE
     Dosage: 3 TABLETS (1875 MG TOTAL) BY MOUTH 2 (TWO) TIMES A DAY
     Route: 048
  13. BACTROBAN [Concomitant]
     Active Substance: MUPIROCIN\MUPIROCIN CALCIUM
  14. LYRICA [Concomitant]
     Active Substance: PREGABALIN
     Dosage: 1 CAPSULE (75 MG TOTAL) BY MOUTH 3 (THREE) TIMES A DAY
     Route: 048
  15. METFORMIN [Concomitant]
     Active Substance: METFORMIN HYDROCHLORIDE
  16. MAG GLYCINATE [Concomitant]
     Dosage: 3 TABLETS BY MOUTH 2 (TWO) TIMES A DAY
     Route: 048
  17. HYDRODIURIL [Concomitant]
     Active Substance: HYDROCHLOROTHIAZIDE
     Dosage: 1 TABLET (25 MG TOTAL) BY MOUTH DAILY
     Route: 048
  18. KLOR?CON [Concomitant]
     Active Substance: POTASSIUM CHLORIDE
     Dosage: 1 TABLET (20 MEQ TOTAL) BY MOUTH DAILY
     Route: 048

REACTIONS (10)
  - Headache [Recovered/Resolved]
  - Anxiety [Recovered/Resolved]
  - Ill-defined disorder [Recovered/Resolved]
  - Dyspnoea [Recovered/Resolved]
  - Chest discomfort [Recovered/Resolved]
  - Dizziness [Recovered/Resolved]
  - Drug hypersensitivity [Unknown]
  - Heart rate increased [Recovered/Resolved]
  - Initial insomnia [Recovered/Resolved]
  - Fatigue [Recovered/Resolved]

NARRATIVE: CASE EVENT DATE: 202104
